FAERS Safety Report 5726150-5 (Version None)
Quarter: 2008Q2

REPORT INFORMATION
  Report Type: 
  Country: None (occurrence: None)
  Receive Date: 20080502
  Receipt Date: 20080422
  Transmission Date: 20081010
  Serious: Yes (Other)
  Sender: FDA-Public Use
  Company Number: US-ROCHE-553736

PATIENT
  Age: 44 Year
  Sex: Male

DRUGS (3)
  1. TAMIFLU [Suspect]
     Route: 065
     Dates: start: 20080201
  2. ALTACE [Concomitant]
  3. ADVIL [Concomitant]

REACTIONS (7)
  - ABDOMINAL DISCOMFORT [None]
  - ASTHENIA [None]
  - CHORIORETINOPATHY [None]
  - CONJUNCTIVITIS [None]
  - FEELING ABNORMAL [None]
  - NAUSEA [None]
  - RASH [None]
